FAERS Safety Report 14447169 (Version 3)
Quarter: 2018Q1

REPORT INFORMATION
  Report Type: Spontaneous
  Country: US (occurrence: US)
  Receive Date: 20180126
  Receipt Date: 20180329
  Transmission Date: 20180509
  Serious: Yes (Other)
  Sender: FDA-Public Use
  Company Number: US-NOVOPROD-582253

PATIENT
  Age: 64 Year
  Sex: Female
  Weight: 68.27 kg

DRUGS (1)
  1. SAXENDA [Suspect]
     Active Substance: LIRAGLUTIDE
     Indication: WEIGHT DECREASED
     Dosage: 3 MG, UNK
     Route: 058
     Dates: start: 201610

REACTIONS (5)
  - Sjogren^s syndrome [Recovered/Resolved]
  - Drug ineffective [Not Recovered/Not Resolved]
  - Fatigue [Recovered/Resolved]
  - Increased appetite [Not Recovered/Not Resolved]
  - Salivary gland enlargement [Recovered/Resolved]

NARRATIVE: CASE EVENT DATE: 20171118
